FAERS Safety Report 6914992-X (Version None)
Quarter: 2010Q3

REPORT INFORMATION
  Report Type: 
  Country: None (occurrence: None)
  Receive Date: 20100809
  Receipt Date: 20100802
  Transmission Date: 20110219
  Serious: Yes (Other)
  Sender: FDA-Public Use
  Company Number: CHPA2010US12436

PATIENT
  Age: 66 Year
  Sex: Female

DRUGS (2)
  1. 4 WAY NASAL DECONGESTANT MOISTURIZING RELIEF (NCH) [Suspect]
     Indication: NASAL CONGESTION
     Dosage: UNK, PRN
     Route: 045
  2. 4 WAY NASAL DECONGESTANT MOISTURIZING RELIEF (NCH) [Suspect]
     Dosage: UNK, QD
     Route: 045

REACTIONS (2)
  - DIABETES MELLITUS [None]
  - INTENTIONAL DRUG MISUSE [None]
